FAERS Safety Report 20730393 (Version 1)
Quarter: 2022Q2

REPORT INFORMATION
  Report Type: Spontaneous
  Country: US (occurrence: None)
  Receive Date: 20220419
  Receipt Date: 20220419
  Transmission Date: 20220720
  Serious: Yes (Other)
  Sender: FDA-Public Use
  Company Number: None

PATIENT
  Age: 22 Year
  Sex: Male
  Weight: 67.5 kg

DRUGS (4)
  1. CEFEPIME [Suspect]
     Active Substance: CEFEPIME HYDROCHLORIDE
     Indication: Osteomyelitis
     Dosage: FREQUENCY : TWICE A DAY;?
     Route: 042
     Dates: start: 20220318, end: 20220407
  2. VANCOMYCIN [Concomitant]
     Active Substance: VANCOMYCIN
  3. HEPARIN [Concomitant]
     Active Substance: HEPARIN SODIUM
  4. SALINE [Concomitant]
     Active Substance: SODIUM CHLORIDE

REACTIONS (2)
  - Pruritus [None]
  - Therapy cessation [None]

NARRATIVE: CASE EVENT DATE: 20220407
